FAERS Safety Report 10015317 (Version 3)
Quarter: 2014Q2

REPORT INFORMATION
  Report Type: Spontaneous
  Country: US (occurrence: US)
  Receive Date: 20140317
  Receipt Date: 20140506
  Transmission Date: 20141212
  Serious: No
  Sender: FDA-Public Use
  Company Number: US-PFIZER INC-2014074127

PATIENT
  Age: 61 Year
  Sex: Male
  Weight: 107 kg

DRUGS (2)
  1. FLECTOR [Suspect]
     Dosage: UNK
     Route: 062
     Dates: start: 2013
  2. PRAZOLE [Concomitant]
     Dosage: UNK

REACTIONS (3)
  - Drug ineffective [Unknown]
  - Poor quality drug administered [Unknown]
  - Product quality issue [Unknown]
